FAERS Safety Report 4531751-6 (Version None)
Quarter: 2004Q4

REPORT INFORMATION
  Report Type: 
  Country: None (occurrence: None)
  Receive Date: 20041220
  Receipt Date: 20040920
  Transmission Date: 20050328
  Serious: Yes (Death, Hospitalization)
  Sender: FDA-Public Use
  Company Number: TH-ROCHE-381052

PATIENT
  Age: 61 Year
  Sex: Female

DRUGS (2)
  1. CAPECITABINE [Suspect]
     Indication: BREAST CANCER
     Route: 048
     Dates: start: 20040901, end: 20040904
  2. IXABEPILONE [Suspect]
     Indication: BREAST CANCER
     Dosage: ONE PER ONE CYCLE.
     Route: 042
     Dates: start: 20040901, end: 20040901

REACTIONS (27)
  - ABDOMINAL DISTENSION [None]
  - ABDOMINAL MASS [None]
  - ACQUIRED DYSFIBRINOGENAEMIA [None]
  - ANAEMIA [None]
  - ASCITES [None]
  - CONTUSION [None]
  - DEVICE FAILURE [None]
  - DIARRHOEA [None]
  - DISSEMINATED INTRAVASCULAR COAGULATION [None]
  - ECCHYMOSIS [None]
  - ESCHERICHIA BACTERAEMIA [None]
  - FUNGAEMIA [None]
  - HAEMORRHAGE [None]
  - HEPATOMEGALY [None]
  - HYPOALBUMINAEMIA [None]
  - HYPOKALAEMIA [None]
  - HYPONATRAEMIA [None]
  - LUNG INFILTRATION [None]
  - METASTASES TO LIVER [None]
  - PANCYTOPENIA [None]
  - PLEURAL EFFUSION [None]
  - PNEUMONIA [None]
  - PNEUMONITIS [None]
  - RESPIRATORY FAILURE [None]
  - SEPSIS [None]
  - SOMNOLENCE [None]
  - THROMBIN TIME PROLONGED [None]
